FAERS Safety Report 20430522 (Version 3)
Quarter: 2022Q2

REPORT INFORMATION
  Report Type: Report from Study
  Country: FR (occurrence: FR)
  Receive Date: 20220204
  Receipt Date: 20220408
  Transmission Date: 20220720
  Serious: Yes (Other)
  Sender: FDA-Public Use
  Company Number: FR-SERVIER-S20009898

PATIENT

DRUGS (8)
  1. PEGASPARGASE [Suspect]
     Active Substance: PEGASPARGASE
     Indication: Acute lymphocytic leukaemia
     Dosage: 3650 IU ON D6
     Route: 042
     Dates: start: 20190115, end: 20190115
  2. TN UNSPECIFIED [Concomitant]
     Indication: Acute lymphocytic leukaemia
     Dosage: 5850 MG ON D1 TO D2
     Route: 042
     Dates: start: 20190110, end: 20190111
  3. TN UNSPECIFIED [Concomitant]
     Dosage: 30 MG, ON D5
     Route: 037
     Dates: start: 20190114
  4. TN UNSPECIFIED [Concomitant]
     Indication: Acute lymphocytic leukaemia
     Dosage: 30 MG ON D1 TO D5
     Route: 048
     Dates: start: 20190110, end: 20190114
  5. TN UNSPECIFIED [Concomitant]
     Dosage: 14.6 MG ON D6
     Route: 048
     Dates: start: 20190115
  6. TN UNSPECIFIED [Concomitant]
     Indication: Acute lymphocytic leukaemia
     Dosage: 657 MG ON D3 TO D5
     Route: 042
     Dates: start: 20190112, end: 20190114
  7. TN UNSPECIFIED [Concomitant]
     Indication: Acute lymphocytic leukaemia
     Dosage: 15 MG ON D5
     Route: 037
     Dates: start: 20190114
  8. TN UNSPECIFIED [Concomitant]
     Indication: Acute lymphocytic leukaemia
     Dosage: 15 MG ON D5
     Route: 037
     Dates: start: 20190114

REACTIONS (1)
  - Hyperlipidaemia [Recovered/Resolved]

NARRATIVE: CASE EVENT DATE: 20190128
